FAERS Safety Report 15256485 (Version 2)
Quarter: 2018Q3

REPORT INFORMATION
  Report Type: Report from Study
  Country: US (occurrence: US)
  Receive Date: 20180808
  Receipt Date: 20180906
  Transmission Date: 20181010
  Serious: Yes (Other)
  Sender: FDA-Public Use
  Company Number: PHEH2018US029932

PATIENT
  Sex: Female

DRUGS (2)
  1. COSENTYX [Suspect]
     Active Substance: SECUKINUMAB
     Indication: ANKYLOSING SPONDYLITIS
     Dosage: 150 MG, QMO
     Route: 058
     Dates: start: 201802, end: 20180625
  2. COSENTYX [Suspect]
     Active Substance: SECUKINUMAB
     Dosage: UNK
     Route: 058

REACTIONS (9)
  - Peripheral swelling [Unknown]
  - Syncope [Unknown]
  - Loss of consciousness [Unknown]
  - Swelling face [Unknown]
  - Tremor [Unknown]
  - Fluid retention [Unknown]
  - Dysarthria [Unknown]
  - Sluggishness [Unknown]
  - Paraesthesia [Unknown]
